FAERS Safety Report 8586536-0 (Version None)
Quarter: 2012Q3

REPORT INFORMATION
  Report Type: 
  Country: None (occurrence: None)
  Receive Date: 20120730
  Receipt Date: 20120702
  Transmission Date: 20120928
  Serious: Yes (Hospitalization, Other)
  Sender: FDA-Public Use
  Company Number: INT_00083_2012

PATIENT
  Age: 61 Year
  Sex: Female

DRUGS (4)
  1. CYCLOSPORINE [Concomitant]
  2. CEFEPIME [Concomitant]
  3. MEROPENEM [Suspect]
     Indication: SALPINGO-OOPHORITIS
     Dosage: (DF)
     Dates: start: 20090101
  4. MEROPENEM [Suspect]
     Indication: FEBRILE NEUTROPENIA
     Dosage: (DF)
     Dates: start: 20090101

REACTIONS (2)
  - RASH [None]
  - PLASMACYTOSIS [None]
